FAERS Safety Report 6452002-1 (Version None)
Quarter: 2009Q4

REPORT INFORMATION
  Report Type: 
  Country: None (occurrence: None)
  Receive Date: 20091123
  Receipt Date: 20091112
  Transmission Date: 20100525
  Serious: Yes (Other)
  Sender: FDA-Public Use
  Company Number: PHEH2009US10595

PATIENT

DRUGS (1)
  1. GLEEVEC [Suspect]
     Indication: CHRONIC MYELOID LEUKAEMIA
     Dosage: 400 MG, UNK
     Route: 048
     Dates: start: 20081101

REACTIONS (7)
  - DEPRESSION [None]
  - FLUID RETENTION [None]
  - LARYNGEAL OEDEMA [None]
  - LARYNGITIS [None]
  - LYMPHOMA [None]
  - NAUSEA [None]
  - OEDEMA [None]
